FAERS Safety Report 13479294 (Version 1)
Quarter: 2017Q2

REPORT INFORMATION
  Report Type: Spontaneous
  Country: US (occurrence: US)
  Receive Date: 20170425
  Receipt Date: 20170425
  Transmission Date: 20170830
  Serious: Yes (Death, Hospitalization, Other)
  Sender: FDA-Public Use
  Company Number: PHHY2006US010968

PATIENT
  Age: 64 Year
  Sex: Female
  Weight: 61.8 kg

DRUGS (20)
  1. CIPRO [Concomitant]
     Active Substance: CIPROFLOXACIN HYDROCHLORIDE
     Indication: PRODUCT USED FOR UNKNOWN INDICATION
     Dosage: 400 MG, BID
     Route: 042
     Dates: start: 20060606, end: 20060608
  2. INSULIN [Concomitant]
     Active Substance: INSULIN NOS
     Indication: PRODUCT USED FOR UNKNOWN INDICATION
     Dosage: UNK, ONCE/SINGLE
     Route: 058
     Dates: start: 20060606, end: 20060606
  3. WARFARIN [Suspect]
     Active Substance: WARFARIN
     Indication: PRODUCT USED FOR UNKNOWN INDICATION
     Dosage: 3 MG, QD
     Route: 048
     Dates: start: 20060606, end: 20060611
  4. RT-PA [Suspect]
     Active Substance: ALTEPLASE
     Indication: CEREBROVASCULAR ACCIDENT
     Dosage: UNK UNK, ONCE/SINGLE
     Route: 042
     Dates: start: 20060603
  5. ONDANSETRON HYDROCHLORIDE. [Concomitant]
     Active Substance: ONDANSETRON HYDROCHLORIDE
     Indication: PRODUCT USED FOR UNKNOWN INDICATION
     Dosage: 4 MG, QID
     Route: 048
     Dates: start: 20060610, end: 20060610
  6. ENOXAPARIN [Concomitant]
     Active Substance: ENOXAPARIN
     Indication: PRODUCT USED FOR UNKNOWN INDICATION
     Dosage: FREQUENCY:  BID
     Route: 058
     Dates: start: 20060608, end: 20060612
  7. LASIX [Concomitant]
     Active Substance: FUROSEMIDE
     Indication: PRODUCT USED FOR UNKNOWN INDICATION
     Dosage: UNK
     Route: 065
     Dates: start: 20060604, end: 20060606
  8. LIPITOR [Concomitant]
     Active Substance: ATORVASTATIN CALCIUM
     Indication: PRODUCT USED FOR UNKNOWN INDICATION
     Dosage: UNK
     Route: 065
     Dates: start: 20060605, end: 20060605
  9. ARGATROBAN. [Suspect]
     Active Substance: ARGATROBAN
     Indication: CEREBROVASCULAR ACCIDENT
     Dosage: 6.18 MG, ONCE/SINGLE
     Route: 042
     Dates: start: 20060603, end: 20060605
  10. LASIX [Concomitant]
     Active Substance: FUROSEMIDE
     Dosage: 40 MG, ONCE/SINGLE
     Route: 042
     Dates: start: 20060606, end: 20060606
  11. POTASSIUM CHLORIDE. [Concomitant]
     Active Substance: POTASSIUM CHLORIDE
     Indication: PRODUCT USED FOR UNKNOWN INDICATION
     Dosage: UNK, ONCE/SINGLE
     Route: 048
     Dates: start: 20060607, end: 20060607
  12. POTASSIUM CHLORIDE. [Concomitant]
     Active Substance: POTASSIUM CHLORIDE
     Dosage: UNK, ONCE/SINGLE
     Route: 048
     Dates: start: 20060610, end: 20060610
  13. SERTRALINE [Concomitant]
     Active Substance: SERTRALINE HYDROCHLORIDE
     Indication: PRODUCT USED FOR UNKNOWN INDICATION
     Dosage: UNK
     Route: 065
     Dates: start: 20060609, end: 20060612
  14. LOVENOX [Suspect]
     Active Substance: ENOXAPARIN SODIUM
     Indication: PRODUCT USED FOR UNKNOWN INDICATION
     Dosage: 60 MG, BID
     Route: 058
     Dates: start: 20060608, end: 20060612
  15. HEPARIN PFIZER [Suspect]
     Active Substance: HEPARIN SODIUM
     Indication: PRODUCT USED FOR UNKNOWN INDICATION
     Dosage: UNK
     Route: 065
     Dates: start: 20060606, end: 20060608
  16. POTASSIUM CHLORIDE. [Concomitant]
     Active Substance: POTASSIUM CHLORIDE
     Dosage: UNK, ONCE/SINGLE
     Route: 048
     Dates: start: 20060609, end: 20060609
  17. PANTOPRAZOLE [Concomitant]
     Active Substance: PANTOPRAZOLE
     Indication: PRODUCT USED FOR UNKNOWN INDICATION
     Dosage: UNK
     Route: 065
     Dates: start: 20060605, end: 20060611
  18. ACETAMINOPHEN. [Concomitant]
     Active Substance: ACETAMINOPHEN
     Indication: PRODUCT USED FOR UNKNOWN INDICATION
     Dosage: 650 MG, PRN
     Route: 065
     Dates: start: 20060606, end: 20060609
  19. INSULIN [Concomitant]
     Active Substance: INSULIN NOS
     Dosage: UNK, ONCE/SINGLE
     Route: 058
     Dates: start: 20060607, end: 20060607
  20. DOCUSATE [Concomitant]
     Active Substance: DOCUSATE
     Indication: PRODUCT USED FOR UNKNOWN INDICATION
     Dosage: FREQUENCY:  BID
     Route: 065
     Dates: start: 20060606, end: 20060612

REACTIONS (9)
  - Aphasia [Unknown]
  - Haemorrhage [Fatal]
  - Blood pressure systolic decreased [Unknown]
  - NIH stroke scale score increased [Unknown]
  - Hemiparesis [Unknown]
  - Depressed level of consciousness [Unknown]
  - Activated partial thromboplastin time prolonged [Unknown]
  - Ventricular arrhythmia [Unknown]
  - International normalised ratio increased [Unknown]

NARRATIVE: CASE EVENT DATE: 20060613
